FAERS Safety Report 11646263 (Version 3)
Quarter: 2016Q3

REPORT INFORMATION
  Report Type: Report from Study
  Country: US (occurrence: US)
  Receive Date: 20151020
  Receipt Date: 20160810
  Transmission Date: 20161109
  Serious: Yes (Other)
  Sender: FDA-Public Use
  Company Number: US-ROCHE-1613516

PATIENT
  Age: 66 Year
  Sex: Male
  Weight: 77.18 kg

DRUGS (4)
  1. ESBRIET [Suspect]
     Active Substance: PIRFENIDONE
     Indication: IDIOPATHIC PULMONARY FIBROSIS
     Route: 048
     Dates: start: 20150515
  2. ESBRIET [Interacting]
     Active Substance: PIRFENIDONE
     Dosage: THREE CAPSULES THREE TIMES DAILY
     Route: 048
  3. ESBRIET [Interacting]
     Active Substance: PIRFENIDONE
     Dosage: 3 CAPSULES THRICE A DAY
     Route: 048
     Dates: start: 201503
  4. WELCHOL [Interacting]
     Active Substance: COLESEVELAM HYDROCHLORIDE
     Indication: BLOOD CHOLESTEROL
     Route: 065

REACTIONS (9)
  - Diarrhoea [Recovered/Resolved]
  - Nausea [Unknown]
  - Decreased appetite [Recovering/Resolving]
  - Drug interaction [Unknown]
  - Diarrhoea [Unknown]
  - Dyspnoea [Unknown]
  - Nausea [Unknown]
  - Urticaria [Recovered/Resolved]
  - Weight decreased [Recovering/Resolving]

NARRATIVE: CASE EVENT DATE: 20150902
